FAERS Safety Report 23200233 (Version 1)
Quarter: 2023Q4

REPORT INFORMATION
  Report Type: Report from Study
  Country: RO (occurrence: RO)
  Receive Date: 20231118
  Receipt Date: 20231118
  Transmission Date: 20240110
  Serious: Yes (Death)
  Sender: FDA-Public Use
  Company Number: RO-ABBVIE-5497525

PATIENT
  Age: 58 Year
  Sex: Male

DRUGS (7)
  1. CARBIDOPA\LEVODOPA [Suspect]
     Active Substance: CARBIDOPA\LEVODOPA
     Indication: Parkinson^s disease
     Dosage: DM=7.00 DC=4.50 ED=3.00 NRED=0; DMN=0.00 DCN=0.00 EDN=0.00 NREDN=0
     Route: 050
     Dates: start: 20231110, end: 20231115
  2. CARBIDOPA\LEVODOPA [Suspect]
     Active Substance: CARBIDOPA\LEVODOPA
  3. METFORMIN HYDROCHLORIDE [Concomitant]
     Active Substance: METFORMIN HYDROCHLORIDE
     Indication: Type 2 diabetes mellitus
     Dosage: 2 TABLET(1 TABLET IN THE MORNING AND 1 TABLET IN THE EVENING)/FORM STRENGTH: 1000 MILLIGRAM
     Dates: start: 20221101, end: 20231115
  4. Thrombex [Concomitant]
     Indication: Bundle branch block right
     Dosage: 1 TABLET/FORM STRENGTH: 75 MILLIGRAM
     Dates: start: 20191101, end: 20231115
  5. NEBIVOLOL [Concomitant]
     Active Substance: NEBIVOLOL
     Indication: Hypertension
     Dosage: NEBILET 5MG WAS ADMINISTERED 1 TABLET IN THE EVENING/FORM STRENGTH: 5 MILLIGRAM
     Dates: start: 20221101, end: 20231115
  6. AMLODIPINE BESYLATE\OLMESARTAN MEDOXOMIL [Concomitant]
     Active Substance: AMLODIPINE BESYLATE\OLMESARTAN MEDOXOMIL
     Indication: Hypertension
     Dosage: 1 TABLET/FORM STRENGTH FOR SEVIKAR IS 40/5MG
     Dates: start: 20221101, end: 20231115
  7. RILMENIDINE [Concomitant]
     Active Substance: RILMENIDINE
     Indication: Hypertension
     Dosage: FORM STRENGTH: 1 MILLIGRAM/AT LUNCH
     Dates: start: 20221101, end: 20231115

REACTIONS (1)
  - Cardio-respiratory arrest [Fatal]

NARRATIVE: CASE EVENT DATE: 20231115
